FAERS Safety Report 14340207 (Version 2)
Quarter: 2018Q1

REPORT INFORMATION
  Report Type: Spontaneous
  Country: IN (occurrence: IN)
  Receive Date: 20171231
  Receipt Date: 20180102
  Transmission Date: 20180509
  Serious: Yes (Death, Hospitalization)
  Sender: FDA-Public Use
  Company Number: IN-ROCHE-2046003

PATIENT
  Age: 77 Year
  Sex: Male

DRUGS (2)
  1. PIRFENIDONE. [Suspect]
     Active Substance: PIRFENIDONE
     Indication: IDIOPATHIC PULMONARY FIBROSIS
     Route: 065
  2. CARBIDOPA/LEVODOPA [Concomitant]
     Active Substance: CARBIDOPA\LEVODOPA
     Indication: PARKINSON^S DISEASE

REACTIONS (5)
  - Pneumonia [Unknown]
  - Sepsis [Unknown]
  - Acute hepatic failure [Unknown]
  - Multiple organ dysfunction syndrome [Unknown]
  - Shock [Fatal]
